FAERS Safety Report 5532208-6 (Version None)
Quarter: 2007Q4

REPORT INFORMATION
  Report Type: 
  Country: None (occurrence: None)
  Receive Date: 20071128
  Receipt Date: 20071119
  Transmission Date: 20080405
  Serious: Yes (Death, Life-Threatening)
  Sender: FDA-Public Use
  Company Number: 2007SP023459

PATIENT
  Age: 69 Year
  Sex: Female
  Weight: 47 kg

DRUGS (11)
  1. TEMODAL [Suspect]
     Indication: GLIOBLASTOMA MULTIFORME
     Dosage: 75 MG/M2; QD; PO, 150 MG/M2; QD; PO, 200 MG/M2; QD; PO
     Route: 048
     Dates: start: 20061222, end: 20070131
  2. TEMODAL [Suspect]
     Indication: GLIOBLASTOMA MULTIFORME
     Dosage: 75 MG/M2; QD; PO, 150 MG/M2; QD; PO, 200 MG/M2; QD; PO
     Route: 048
     Dates: start: 20070227, end: 20070303
  3. TEMODAL [Suspect]
     Indication: GLIOBLASTOMA MULTIFORME
     Dosage: 75 MG/M2; QD; PO, 150 MG/M2; QD; PO, 200 MG/M2; QD; PO
     Route: 048
     Dates: start: 20070327, end: 20070331
  4. BACTRIM [Concomitant]
  5. PHENYTOIN SODIUM CAP [Concomitant]
  6. DEPAKENE [Concomitant]
  7. GASTER [Concomitant]
  8. ALLEGRA [Concomitant]
  9. TETRAMIDE [Concomitant]
  10. PAXIL [Concomitant]
  11. ASPIRIN [Concomitant]

REACTIONS (2)
  - DISSEMINATED TUBERCULOSIS [None]
  - STEVENS-JOHNSON SYNDROME [None]
